FAERS Safety Report 14015214 (Version 8)
Quarter: 2018Q2

REPORT INFORMATION
  Report Type: Spontaneous
  Country: FR (occurrence: FR)
  Receive Date: 20170927
  Receipt Date: 20180513
  Transmission Date: 20180711
  Serious: Yes (Life-Threatening, Other)
  Sender: FDA-Public Use
  Company Number: FR-009507513-1709FRA012367

PATIENT
  Age: 28 Year
  Sex: Female
  Weight: 75 kg

DRUGS (14)
  1. ORGALUTRAN [Suspect]
     Active Substance: GANIRELIX ACETATE
     Indication: CONTROLLED OVARIAN STIMULATION
     Dosage: 1 DF (0.25 MG/0.5 ML)), QD
     Route: 058
     Dates: start: 20170812, end: 20170814
  2. GONAL-F [Suspect]
     Active Substance: FOLLITROPIN
     Dosage: 300 IU, QD
     Route: 058
     Dates: start: 20170811, end: 20170825
  3. GONAL-F [Suspect]
     Active Substance: FOLLITROPIN
     Indication: CONTROLLED OVARIAN STIMULATION
     Dosage: 287.5 IU, QD
     Route: 058
     Dates: start: 20170807, end: 20170815
  4. NERISONE [Concomitant]
     Active Substance: DIFLUCORTOLONE VALERATE
     Indication: LICHEN MYXOEDEMATOSUS
     Dosage: UNK
     Route: 065
  5. REVLIMID [Concomitant]
     Active Substance: LENALIDOMIDE
     Indication: LICHEN MYXOEDEMATOSUS
     Dosage: UNK
     Route: 065
     Dates: start: 201709
  6. CLAIRYG [Suspect]
     Active Substance: HUMAN IMMUNOGLOBULIN G
     Indication: LICHEN MYXOEDEMATOSUS
     Dosage: STRENGTH: 50 MG/ML, ONE VIAL OF 10 G AND ONE VIAL OF 20 G
     Route: 041
     Dates: start: 20170822
  7. DECAPEPTYL (ACETATE) [Suspect]
     Active Substance: TRIPTORELIN ACETATE
     Indication: CONTROLLED OVARIAN STIMULATION
     Dosage: 0.2 MG, UNK
     Route: 058
     Dates: start: 20170816, end: 20170816
  8. PLAQUENIL [Concomitant]
     Active Substance: HYDROXYCHLOROQUINE SULFATE
     Indication: MYXOEDEMA
  9. DEXAMETHASONE. [Concomitant]
     Active Substance: DEXAMETHASONE
     Indication: LICHEN MYXOEDEMATOSUS
     Dosage: UNK
     Route: 065
     Dates: start: 201709
  10. CLAIRYG [Suspect]
     Active Substance: HUMAN IMMUNOGLOBULIN G
     Dosage: ONE VIAL OF 10 G AND ONE VIAL OF 20 G
     Route: 041
     Dates: start: 20170822
  11. PLAQUENIL [Concomitant]
     Active Substance: HYDROXYCHLOROQUINE SULFATE
     Indication: LICHEN MYXOEDEMATOSUS
     Dosage: 600 MG, QD
     Route: 065
  12. DESOGESTREL [Suspect]
     Active Substance: DESOGESTREL
     Indication: CONTRACEPTION
     Dosage: 1 DF, QD
     Route: 048
     Dates: end: 201707
  13. AERIUS [Concomitant]
     Active Substance: DESLORATADINE
     Dosage: UNK
     Route: 048
  14. AERIUS [Concomitant]
     Active Substance: DESLORATADINE
     Route: 048

REACTIONS (9)
  - Blood culture positive [Recovered/Resolved]
  - Dyspnoea exertional [Recovered/Resolved]
  - Intracardiac thrombus [Recovered/Resolved]
  - Nasopharyngitis [Unknown]
  - Product use in unapproved indication [Unknown]
  - Escherichia infection [Unknown]
  - Off label use [Unknown]
  - Incorrect dose administered [Unknown]
  - Pulmonary embolism [Recovered/Resolved]

NARRATIVE: CASE EVENT DATE: 2017
